FAERS Safety Report 21593661 (Version 6)
Quarter: 2023Q1

REPORT INFORMATION
  Report Type: Report from Study
  Country: US (occurrence: US)
  Receive Date: 20221115
  Receipt Date: 20230316
  Transmission Date: 20230418
  Serious: No
  Sender: FDA-Public Use
  Company Number: US-002147023-NVSC2022US252956

PATIENT
  Sex: Male

DRUGS (1)
  1. COSENTYX [Suspect]
     Active Substance: SECUKINUMAB
     Indication: Psoriasis
     Dosage: 300 MG, QW (EVERY WEEK 5 WEEKS THEN EVERY 4 WEEKS)
     Route: 058
     Dates: start: 20220927

REACTIONS (3)
  - Weight decreased [Unknown]
  - Blood pressure increased [Recovering/Resolving]
  - Skin discolouration [Unknown]
